FAERS Safety Report 26008672 (Version 1)
Quarter: 2025Q4

REPORT INFORMATION
  Report Type: Spontaneous
  Country: JP (occurrence: JP)
  Receive Date: 20251106
  Receipt Date: 20251106
  Transmission Date: 20260117
  Serious: Yes (Death, Other)
  Sender: MERCK SHARP & DOHME LLC
  Company Number: JP-009507513-2346689

PATIENT
  Sex: Male

DRUGS (1)
  1. KEYTRUDA [Suspect]
     Active Substance: PEMBROLIZUMAB
     Indication: Laryngeal cancer recurrent

REACTIONS (2)
  - Death [Fatal]
  - Malignant neoplasm progression [Unknown]
